FAERS Safety Report 23860625 (Version 1)
Quarter: 2024Q2

REPORT INFORMATION
  Report Type: Spontaneous
  Country: US (occurrence: US)
  Receive Date: 20240516
  Receipt Date: 20240516
  Transmission Date: 20240716
  Serious: No
  Sender: FDA-Public Use
  Company Number: US-HALEON-2175226

PATIENT
  Age: 72 Year
  Sex: Female

DRUGS (1)
  1. TUMS ULTRA [Suspect]
     Active Substance: CALCIUM CARBONATE
     Indication: Vitamin supplementation
     Dosage: EXPDATE:202806 5 - TABLETS (TAB)

REACTIONS (1)
  - Overdose [Unknown]
